FAERS Safety Report 6468096-3 (Version None)
Quarter: 2010Q1

REPORT INFORMATION
  Report Type: 
  Country: None (occurrence: None)
  Receive Date: 20091127
  Receipt Date: 20091113
  Transmission Date: 20100710
  Serious: Yes (Life-Threatening, Hospitalization)
  Sender: FDA-Public Use
  Company Number: 2009AL007290

PATIENT
  Age: 71 Year
  Sex: Male

DRUGS (5)
  1. SPIRONOLACTONE [Suspect]
     Indication: CIRRHOSIS ALCOHOLIC
     Dosage: 100 MG BID; PO
     Route: 048
     Dates: start: 20080601, end: 20090925
  2. RAMIPRIL [Suspect]
     Indication: HYPERTENSION
     Dosage: 5 MG, QD, PO
     Route: 048
     Dates: start: 20080601, end: 20090925
  3. PROPRANOLOL HYDROCHLORIDE [Suspect]
     Indication: HYPERTENSION
     Dosage: 12.5 MG, QD, PO
     Route: 048
     Dates: start: 20080601
  4. TORSEMIDE [Suspect]
  5. OMEPRAZOLE [Suspect]

REACTIONS (7)
  - ARRHYTHMIA [None]
  - BRADYCARDIA [None]
  - DIZZINESS [None]
  - HAEMODIALYSIS [None]
  - HYPERKALAEMIA [None]
  - RENAL FAILURE ACUTE [None]
  - VOMITING [None]
